FAERS Safety Report 9120664 (Version 6)
Quarter: 2015Q2

REPORT INFORMATION
  Report Type: Spontaneous
  Country: US (occurrence: US)
  Receive Date: 20130226
  Receipt Date: 20150615
  Transmission Date: 20150821
  Serious: Yes (Hospitalization, Disabling, Other)
  Sender: FDA-Public Use
  Company Number: US-009507513-1302USA012146

PATIENT
  Sex: Female
  Weight: 53.97 kg

DRUGS (6)
  1. FOSAMAX [Suspect]
     Active Substance: ALENDRONATE SODIUM
     Indication: OSTEOPOROSIS
     Dosage: 70 MG, DAILY
     Route: 048
     Dates: end: 20110730
  2. FOSAMAX [Suspect]
     Active Substance: ALENDRONATE SODIUM
     Dosage: 10 MG, QD
     Route: 048
     Dates: start: 1997
  3. ALENDRONATE SODIUM. [Suspect]
     Active Substance: ALENDRONATE SODIUM
     Dosage: 70 MG, UNK
     Route: 048
     Dates: start: 20080215, end: 20130524
  4. FOSAMAX [Suspect]
     Active Substance: ALENDRONATE SODIUM
     Dosage: 70 MG, QW
     Route: 048
     Dates: start: 20020924, end: 20080115
  5. FOSAMAX [Suspect]
     Active Substance: ALENDRONATE SODIUM
     Dosage: UNK
     Route: 048
     Dates: end: 201107
  6. CALCIUM (UNSPECIFIED) [Concomitant]
     Active Substance: CALCIUM
     Dosage: 1200 MG, QD
     Dates: start: 1998

REACTIONS (35)
  - Bronchitis chronic [Unknown]
  - Pernicious anaemia [Unknown]
  - Dizziness [Unknown]
  - Intramedullary rod insertion [Unknown]
  - Ankle fracture [Unknown]
  - Irritable bowel syndrome [Unknown]
  - Growth hormone deficiency [Unknown]
  - Patella fracture [Unknown]
  - Colectomy [Unknown]
  - Colitis [Unknown]
  - Low turnover osteopathy [Unknown]
  - Reflux gastritis [Unknown]
  - Diverticulitis [Unknown]
  - Insulin-like growth factor decreased [Unknown]
  - Sinusitis [Unknown]
  - Inappropriate schedule of drug administration [Unknown]
  - Cognitive disorder [Not Recovered/Not Resolved]
  - Asthma [Unknown]
  - Epilepsy [Not Recovered/Not Resolved]
  - Vitamin B12 deficiency [Unknown]
  - Memory impairment [Unknown]
  - Rib fracture [Unknown]
  - Femur fracture [Recovered/Resolved]
  - Ligament sprain [Unknown]
  - Bronchitis [Unknown]
  - Osteopenia [Unknown]
  - Fracture nonunion [Recovering/Resolving]
  - Hypertension [Unknown]
  - Foot fracture [Unknown]
  - Depression [Unknown]
  - Allergic respiratory symptom [Unknown]
  - Hypercholesterolaemia [Unknown]
  - Diverticulum [Unknown]
  - Spinal osteoarthritis [Unknown]
  - Nausea [Unknown]

NARRATIVE: CASE EVENT DATE: 1998
